FAERS Safety Report 7991525-0 (Version None)
Quarter: 2011Q4

REPORT INFORMATION
  Report Type: 
  Country: None (occurrence: None)
  Receive Date: 20111219
  Receipt Date: 20111213
  Transmission Date: 20120403
  Serious: Yes (Death, Hospitalization)
  Sender: FDA-Public Use
  Company Number: DE-ELI_LILLY_AND_COMPANY-DE201112001262

PATIENT
  Age: 70 Year
  Sex: Male
  Weight: 83 kg

DRUGS (5)
  1. BEVACIZUMAB [Suspect]
     Indication: NON-SMALL CELL LUNG CANCER
     Dosage: 7.5 MG/KG, 1 IN 3 WEEKS
     Route: 042
     Dates: start: 20110517, end: 20110702
  2. CARBOPLATIN [Suspect]
     Indication: NON-SMALL CELL LUNG CANCER
     Dosage: 5 AUC, 1 IN THREE WEEKS
     Route: 042
     Dates: start: 20110517
  3. CARBOPLATIN [Suspect]
     Dosage: 75% OF DOSE, 1 IN THREE WEEKS
     Route: 042
     Dates: start: 20110607, end: 20110702
  4. PEMETREXED [Suspect]
     Indication: NON-SMALL CELL LUNG CANCER
     Dosage: 500 MG/KG, 1 IN 3 WEEKS
     Route: 042
     Dates: start: 20110517
  5. PEMETREXED [Suspect]
     Dosage: 375 MG/KG, ONE IN THREE WEEKS
     Route: 042
     Dates: start: 20110607, end: 20110702

REACTIONS (2)
  - PANCYTOPENIA [None]
  - THROMBOCYTOPENIA [None]
